FAERS Safety Report 9249267 (Version 1)
Quarter: 2013Q2

REPORT INFORMATION
  Report Type: Other
  Country: FR (occurrence: FR)
  Receive Date: 20130422
  Receipt Date: 20130422
  Transmission Date: 20140414
  Serious: Yes (Hospitalization)
  Sender: FDA-Public Use
  Company Number: FR-CTI_01576_2013

PATIENT
  Sex: Female

DRUGS (1)
  1. CARDENE IV [Suspect]
     Indication: PREMATURE LABOUR
     Dosage: DF
     Route: 042

REACTIONS (2)
  - Rash [Unknown]
  - Exposure during pregnancy [None]
